FAERS Safety Report 10192010 (Version 3)
Quarter: 2014Q2

REPORT INFORMATION
  Report Type: Spontaneous
  Country: TR (occurrence: TR)
  Receive Date: 20140523
  Receipt Date: 20140528
  Transmission Date: 20141212
  Serious: Yes (Other)
  Sender: FDA-Public Use
  Company Number: TR-PFIZER INC-2014137273

PATIENT
  Age: 24 Year
  Sex: Male
  Weight: 80 kg

DRUGS (1)
  1. CHAMPIX [Suspect]
     Dosage: 24 TABLETS FOR 10 DAYS

REACTIONS (10)
  - Bipolar disorder [Not Recovered/Not Resolved]
  - Suicide attempt [Unknown]
  - Depression [Unknown]
  - Daydreaming [Unknown]
  - Abnormal behaviour [Not Recovered/Not Resolved]
  - Condition aggravated [Unknown]
  - Sedation [Unknown]
  - Pyrexia [Unknown]
  - Tremor [Unknown]
  - Chills [Unknown]
